FAERS Safety Report 6406393-8 (Version None)
Quarter: 2009Q4

REPORT INFORMATION
  Report Type: 
  Country: None (occurrence: None)
  Receive Date: 20091014
  Receipt Date: 20090930
  Transmission Date: 20100525
  Serious: Yes (Other)
  Sender: FDA-Public Use
  Company Number: 2009AL006509

PATIENT
  Sex: Female

DRUGS (1)
  1. FEVERALL [Suspect]
     Dosage: 8 GM;

REACTIONS (5)
  - ANAPHYLACTIC REACTION [None]
  - DIARRHOEA [None]
  - FLUSHING [None]
  - OVERDOSE [None]
  - RENAL INFARCT [None]
